FAERS Safety Report 16949231 (Version 1)
Quarter: 2019Q4

REPORT INFORMATION
  Report Type: Report from Study
  Country: US (occurrence: US)
  Receive Date: 20191023
  Receipt Date: 20191023
  Transmission Date: 20200122
  Serious: Yes (Other)
  Sender: FDA-Public Use
  Company Number: US-ROCHE-2450482

PATIENT
  Age: 86 Year
  Sex: Female

DRUGS (1)
  1. ATEZOLIZUMAB. [Suspect]
     Active Substance: ATEZOLIZUMAB
     Indication: BLADDER CANCER
     Route: 065

REACTIONS (4)
  - Chronic kidney disease [Unknown]
  - Dyspnoea [Unknown]
  - Hypertension [Unknown]
  - Hypoxia [Unknown]

NARRATIVE: CASE EVENT DATE: 20180628
